FAERS Safety Report 9865918 (Version 1)
Quarter: 2014Q1

REPORT INFORMATION
  Report Type: Spontaneous
  Country: US (occurrence: US)
  Receive Date: 20140203
  Receipt Date: 20140203
  Transmission Date: 20141002
  Serious: No
  Sender: FDA-Public Use
  Company Number: US-ALLERGAN-1314318US

PATIENT
  Age: 62 Year
  Sex: Female

DRUGS (7)
  1. RESTASIS [Suspect]
     Indication: REMOVAL OF INERT MATTER FROM SKIN OR SUBCUTANEOUS TISSUE
     Dosage: UNK
     Route: 047
     Dates: start: 20130807
  2. RESTASIS [Suspect]
     Indication: DRY EYE
     Dosage: UNK
     Route: 047
     Dates: start: 201307, end: 201307
  3. CLARITIN                           /00413701/ [Concomitant]
     Indication: SEASONAL ALLERGY
  4. NASACORT [Concomitant]
     Indication: NASAL CONGESTION
  5. PRILOSEC                           /00661201/ [Concomitant]
     Indication: GASTROOESOPHAGEAL REFLUX DISEASE
     Dosage: UNK
  6. TRAZODONE [Concomitant]
     Indication: INSOMNIA
     Dosage: UNK
  7. IBUPROFEN [Concomitant]
     Indication: PAIN
     Dosage: UNK

REACTIONS (3)
  - Off label use [Unknown]
  - Superficial injury of eye [Recovered/Resolved]
  - Eye pain [Recovered/Resolved]
